FAERS Safety Report 25878989 (Version 2)
Quarter: 2025Q4

REPORT INFORMATION
  Report Type: Spontaneous
  Country: US (occurrence: US)
  Receive Date: 20251003
  Receipt Date: 20251022
  Transmission Date: 20260118
  Serious: No
  Sender: PFIZER
  Company Number: US-PFIZER INC-202500194569

PATIENT
  Age: 80 Year
  Sex: Female

DRUGS (1)
  1. PAXLOVID [Suspect]
     Active Substance: NIRMATRELVIR\RITONAVIR
     Indication: COVID-19 treatment
     Dosage: UNK
     Dates: start: 202509

REACTIONS (2)
  - Vomiting [Unknown]
  - Diarrhoea [Unknown]

NARRATIVE: CASE EVENT DATE: 20250930
